FAERS Safety Report 7795023-9 (Version None)
Quarter: 2011Q4

REPORT INFORMATION
  Report Type: 
  Country: None (occurrence: None)
  Receive Date: 20111003
  Receipt Date: 20111003
  Transmission Date: 20120403
  Serious: Yes (Hospitalization)
  Sender: FDA-Public Use
  Company Number: None

PATIENT
  Age: 48 Year
  Sex: Male
  Weight: 70.2 kg

DRUGS (2)
  1. VENLAFAXINE [Suspect]
     Indication: ANXIETY
     Dosage: 300 MG  EVERY DAY  PO
     Route: 048
     Dates: start: 20110607, end: 20110726
  2. VENLAFAXINE [Suspect]
     Indication: DEPRESSION
     Dosage: 300 MG  EVERY DAY  PO
     Route: 048
     Dates: start: 20110607, end: 20110726

REACTIONS (2)
  - HALLUCINATION [None]
  - PSYCHOTIC DISORDER [None]
